FAERS Safety Report 23422173 (Version 1)
Quarter: 2024Q1

REPORT INFORMATION
  Report Type: Spontaneous
  Country: CN (occurrence: CN)
  Receive Date: 20240119
  Receipt Date: 20240119
  Transmission Date: 20240410
  Serious: Yes (Other)
  Sender: FDA-Public Use
  Company Number: CN-JNJFOC-20240132719

PATIENT

DRUGS (2)
  1. UPTRAVI [Suspect]
     Active Substance: SELEXIPAG
     Indication: Pulmonary arterial hypertension
     Route: 048
  2. UPTRAVI [Suspect]
     Active Substance: SELEXIPAG
     Indication: Pulmonary hypertension

REACTIONS (113)
  - Drug-induced liver injury [Unknown]
  - Syncope [Unknown]
  - Pulmonary oedema [Unknown]
  - Right ventricular failure [Unknown]
  - Intussusception [Unknown]
  - Cardiac arrest [Unknown]
  - Portal hypertensive gastropathy [Unknown]
  - Dependence on respirator [Unknown]
  - Protein-losing gastroenteropathy [Unknown]
  - Hyperthyroidism [Unknown]
  - Dyspnoea at rest [Unknown]
  - Chronic hepatic failure [Unknown]
  - Gastric antral vascular ectasia [Unknown]
  - Pulmonary artery thrombosis [Unknown]
  - Cardiorenal syndrome [Unknown]
  - Cardiac failure high output [Unknown]
  - Spontaneous bacterial peritonitis [Unknown]
  - Vascular device infection [Unknown]
  - Pneumonia [Unknown]
  - Cor pulmonale [Unknown]
  - Respiratory failure [Unknown]
  - Cardiac failure [Unknown]
  - Pericardial effusion [Unknown]
  - Left ventricular failure [Unknown]
  - Hypokalaemia [Unknown]
  - Ascites [Unknown]
  - Scleroderma [Unknown]
  - Hypoxia [Unknown]
  - Gastric varices [Unknown]
  - Dysentery [Unknown]
  - Concomitant disease progression [Unknown]
  - Concomitant disease aggravated [Unknown]
  - Pneumonia bacterial [Unknown]
  - Decreased appetite [Unknown]
  - Chronic left ventricular failure [Unknown]
  - Pleural effusion [Unknown]
  - Flushing [Unknown]
  - Pain in jaw [Unknown]
  - Myalgia [Unknown]
  - Headache [Unknown]
  - Nausea [Unknown]
  - Diarrhoea [Unknown]
  - Pain in extremity [Unknown]
  - Hypotension [Unknown]
  - Oedema peripheral [Unknown]
  - Dyspnoea [Unknown]
  - Hypervolaemia [Unknown]
  - Fluid retention [Unknown]
  - Haemoglobin decreased [Unknown]
  - Dyspnoea exertional [Unknown]
  - Abdominal discomfort [Unknown]
  - Chest pain [Unknown]
  - Oxygen saturation decreased [Unknown]
  - Oedema [Unknown]
  - Nasal congestion [Unknown]
  - Migraine [Unknown]
  - Palpitations [Unknown]
  - Abdominal distension [Unknown]
  - Chest discomfort [Unknown]
  - Dyspepsia [Unknown]
  - Heart rate increased [Unknown]
  - Neck pain [Unknown]
  - Epistaxis [Unknown]
  - Blood pressure decreased [Unknown]
  - Musculoskeletal pain [Unknown]
  - Productive cough [Unknown]
  - Oxygen consumption increased [Unknown]
  - Chronic obstructive pulmonary disease [Unknown]
  - Lung disorder [Unknown]
  - Catheterisation cardiac [Unknown]
  - Brain natriuretic peptide increased [Unknown]
  - Limb discomfort [Unknown]
  - Faeces soft [Unknown]
  - Presyncope [Unknown]
  - Blood potassium decreased [Unknown]
  - Dialysis hypotension [Unknown]
  - Duodenal neoplasm [Unknown]
  - Right atrial dilatation [Unknown]
  - Right ventricular enlargement [Unknown]
  - Right ventricular dysfunction [Unknown]
  - Dyspnoea paroxysmal nocturnal [Unknown]
  - Right ventricular dilatation [Unknown]
  - Inferior vena cava dilatation [Unknown]
  - Metapneumovirus infection [Unknown]
  - Dizziness exertional [Unknown]
  - Transferrin saturation decreased [Unknown]
  - Cardiac output decreased [Unknown]
  - Creatinine renal clearance abnormal [Unknown]
  - Disease complication [Unknown]
  - Nocturnal dyspnoea [Unknown]
  - Atrial tachycardia [Unknown]
  - Dilatation atrial [Unknown]
  - Jugular vein distension [Unknown]
  - Hypersplenism [Unknown]
  - Oxygen saturation increased [Unknown]
  - Bronchitis viral [Unknown]
  - Blood corticotrophin decreased [Unknown]
  - Sickle cell disease [Unknown]
  - Orthopnoea [Unknown]
  - Tracheal disorder [Unknown]
  - Dialysis hypotension [Unknown]
  - Creatinine renal clearance abnormal [Unknown]
  - Liver function test increased [Unknown]
  - Pyrexia [Unknown]
  - Gout [Unknown]
  - Rash [Unknown]
  - Erythema [Unknown]
  - Urticaria [Unknown]
  - Blood thyroid stimulating hormone decreased [Unknown]
  - Gastroenteritis viral [Unknown]
  - Hepatic function abnormal [Unknown]
  - Hepatic enzyme increased [Unknown]
  - Hepatic enzyme abnormal [Unknown]
